FAERS Safety Report 8840405 (Version 1)
Quarter: 2012Q4

REPORT INFORMATION
  Report Type: 
  Country: US (occurrence: US)
  Receive Date: 20121015
  Receipt Date: 20121015
  Transmission Date: 20130627
  Serious: Yes (Other)
  Sender: FDA-Public Use
  Company Number: US-ROCHE-1139544

PATIENT
  Sex: Female
  Weight: 39.6 kg

DRUGS (3)
  1. PROTROPIN [Suspect]
     Indication: TURNER^S SYNDROME
     Route: 058
  2. IMIPRAMINE [Concomitant]
     Dosage: 3-5 tablets
     Route: 048
  3. OXANDROLONE [Concomitant]
     Route: 048

REACTIONS (4)
  - Blood pressure increased [Unknown]
  - Tympanic membrane perforation [Unknown]
  - Drug dose omission [Unknown]
  - Ear infection [Unknown]
